FAERS Safety Report 9207932 (Version 1)
Quarter: 2013Q2

REPORT INFORMATION
  Report Type: Report from Study
  Country: US (occurrence: US)
  Receive Date: 20130403
  Receipt Date: 20130403
  Transmission Date: 20140414
  Serious: Yes (Hospitalization)
  Sender: FDA-Public Use
  Company Number: US-ACTELION-A-NJ2013-81405

PATIENT
  Age: 57 Year
  Sex: Female

DRUGS (1)
  1. VELETRI [Suspect]
     Indication: COR PULMONALE CHRONIC
     Dosage: 10.5 NG/KG, PER MIN
     Route: 041
     Dates: start: 20120413

REACTIONS (6)
  - Dysentery [Unknown]
  - Muscular weakness [Unknown]
  - Heart rate increased [Unknown]
  - Chest pain [Unknown]
  - Vomiting [Unknown]
  - Dyspnoea [Unknown]
